FAERS Safety Report 6304141-3 (Version None)
Quarter: 2009Q3

REPORT INFORMATION
  Report Type: 
  Country: None (occurrence: None)
  Receive Date: 20090806
  Receipt Date: 20090723
  Transmission Date: 20100115
  Serious: Yes (Death)
  Sender: FDA-Public Use
  Company Number: 2008AL006569

PATIENT
  Age: 74 Year
  Sex: Male
  Weight: 88.905 kg

DRUGS (10)
  1. DIGOXIN [Suspect]
     Dosage: 0.125MG, PO
     Route: 048
  2. METOPROLOL [Concomitant]
  3. LISINOPRIL [Concomitant]
  4. SOTONOL [Concomitant]
  5. ALLOPURINOL [Concomitant]
  6. WARFARIN SODIUM [Concomitant]
  7. FUROSEMIDE [Concomitant]
  8. FOLATE [Concomitant]
  9. DIAZEPAM [Concomitant]
  10. TYLENOL (CAPLET) [Concomitant]

REACTIONS (14)
  - ANAEMIA [None]
  - ANXIETY [None]
  - CARDIAC ARREST [None]
  - CONDITION AGGRAVATED [None]
  - ECONOMIC PROBLEM [None]
  - EMOTIONAL DISTRESS [None]
  - FAMILY STRESS [None]
  - MULTIPLE INJURIES [None]
  - OEDEMA [None]
  - PAIN [None]
  - SOCIAL PROBLEM [None]
  - SUDDEN DEATH [None]
  - UNDERDOSE [None]
  - UPPER RESPIRATORY TRACT INFECTION [None]
